FAERS Safety Report 14309818 (Version 1)
Quarter: 2017Q4

REPORT INFORMATION
  Report Type: Spontaneous
  Country: US (occurrence: US)
  Receive Date: 20171220
  Receipt Date: 20171220
  Transmission Date: 20180321
  Serious: No
  Sender: FDA-Public Use
  Company Number: US-MIKART, INC.-2037493

PATIENT
  Age: 81 Year
  Sex: Female
  Weight: 63.49 kg

DRUGS (11)
  1. COSOPT [Concomitant]
     Active Substance: DORZOLAMIDE HYDROCHLORIDE\TIMOLOL MALEATE
  2. LOSARTAN. [Concomitant]
     Active Substance: LOSARTAN
  3. BISOPROLOL FUMARATE AND HYDROCHLOROTHIAZIDE [Concomitant]
     Active Substance: BISOPROLOL FUMARATE\HYDROCHLOROTHIAZIDE
  4. COENZYME Q10 [Concomitant]
     Active Substance: UBIDECARENONE
  5. ZANTAC [Concomitant]
     Active Substance: RANITIDINE HYDROCHLORIDE
  6. VAGIFEM [Concomitant]
     Active Substance: ESTRADIOL
  7. METHAZOLAMIDE. [Suspect]
     Active Substance: METHAZOLAMIDE
     Indication: GLAUCOMA
     Route: 048
     Dates: start: 20170713, end: 201711
  8. XALATAN [Concomitant]
     Active Substance: LATANOPROST
  9. MONTELUKAST [Concomitant]
     Active Substance: MONTELUKAST SODIUM
  10. GAVISCON [Concomitant]
     Active Substance: ALUMINUM HYDROXIDE\MAGNESIUM CARBONATE
  11. BIOTIN [Concomitant]
     Active Substance: BIOTIN

REACTIONS (7)
  - Dry mouth [Recovered/Resolved]
  - Blood pressure increased [Recovered/Resolved]
  - Fatigue [Recovered/Resolved]
  - Nausea [Recovered/Resolved]
  - Headache [Recovered/Resolved]
  - Nasal dryness [Recovered/Resolved]
  - Eye irritation [Recovered/Resolved]

NARRATIVE: CASE EVENT DATE: 201707
